FAERS Safety Report 4726688-3 (Version None)
Quarter: 2005Q3

REPORT INFORMATION
  Report Type: 
  Country: None (occurrence: None)
  Receive Date: 20050725
  Receipt Date: 20050314
  Transmission Date: 20060218
  Serious: No
  Sender: FDA-Public Use
  Company Number: USA030127015

PATIENT
  Age: 9 Year
  Sex: Male
  Weight: 36 kg

DRUGS (3)
  1. STRATTERA [Suspect]
     Indication: ATTENTION DEFICIT/HYPERACTIVITY DISORDER
     Dosage: 40 MG/D
     Dates: start: 20030110
  2. NORTRIPTYLINE HCL [Concomitant]
  3. RITALIN [Concomitant]

REACTIONS (11)
  - ABDOMINAL DISCOMFORT [None]
  - ABNORMAL BEHAVIOUR [None]
  - ANXIETY [None]
  - ATTENTION DEFICIT/HYPERACTIVITY DISORDER [None]
  - ATTENTION-SEEKING BEHAVIOUR [None]
  - CONSTIPATION [None]
  - DISTURBANCE IN ATTENTION [None]
  - DRUG EFFECT DECREASED [None]
  - DYSPHONIA [None]
  - ERUCTATION [None]
  - PRESCRIBED OVERDOSE [None]
